FAERS Safety Report 9224538 (Version 2)
Quarter: 2013Q2

REPORT INFORMATION
  Report Type: Spontaneous
  Country: HN (occurrence: HN)
  Receive Date: 20130411
  Receipt Date: 20130508
  Transmission Date: 20140414
  Serious: Yes (Other)
  Sender: FDA-Public Use
  Company Number: HN-JNJFOC-20130401636

PATIENT
  Age: 35 Year
  Sex: 0

DRUGS (3)
  1. INVEGA SUSTENNA [Suspect]
     Indication: PRODUCT USED FOR UNKNOWN INDICATION
     Route: 030
  2. INVEGA SUSTENNA [Suspect]
     Indication: PRODUCT USED FOR UNKNOWN INDICATION
     Route: 030
  3. ARIPIPRAZOLE [Concomitant]
     Route: 048

REACTIONS (5)
  - Depressed mood [Unknown]
  - Injection site reaction [Unknown]
  - Myalgia [Unknown]
  - Paranoia [Recovering/Resolving]
  - Somnolence [Unknown]
